FAERS Safety Report 8738417 (Version 5)
Quarter: 2015Q4

REPORT INFORMATION
  Report Type: Spontaneous
  Country: US (occurrence: US)
  Receive Date: 20120823
  Receipt Date: 20151230
  Transmission Date: 20160305
  Serious: Yes (Disabling)
  Sender: FDA-Public Use
  Company Number: US-009507513-1208USA005561

PATIENT
  Sex: Male

DRUGS (1)
  1. PROPECIA [Suspect]
     Active Substance: FINASTERIDE
     Indication: ALOPECIA
     Dosage: 1 MG, UNK
     Route: 048
     Dates: start: 20090516, end: 201106

REACTIONS (14)
  - Prostatitis [Recovered/Resolved]
  - Erectile dysfunction [Recovered/Resolved]
  - Anxiety [Not Recovered/Not Resolved]
  - Penis disorder [Unknown]
  - Sexual dysfunction [Not Recovered/Not Resolved]
  - Genital disorder male [Unknown]
  - Middle insomnia [Unknown]
  - Depression [Unknown]
  - Ejaculation failure [Not Recovered/Not Resolved]
  - Muscle atrophy [Unknown]
  - Loss of libido [Not Recovered/Not Resolved]
  - Blood testosterone decreased [Unknown]
  - Fatigue [Unknown]
  - Ejaculation disorder [Unknown]

NARRATIVE: CASE EVENT DATE: 201012
